FAERS Safety Report 19467582 (Version 9)
Quarter: 2023Q2

REPORT INFORMATION
  Report Type: Report from Study
  Country: KR (occurrence: None)
  Receive Date: 20210628
  Receipt Date: 20230503
  Transmission Date: 20230721
  Serious: Yes (Hospitalization)
  Sender: FDA-Public Use
  Company Number: KR-ROCHE-2849544

PATIENT
  Age: 65 Year
  Sex: Male
  Weight: 72.9 kg

DRUGS (39)
  1. TIRAGOLUMAB [Suspect]
     Active Substance: TIRAGOLUMAB
     Indication: Small cell lung cancer extensive stage
     Dosage: START DATE OF MOST RECENT DOSE OF STUDY DRUG PRIOR TO AE/SAE: 01/JUN/2021
     Route: 042
     Dates: start: 20201229, end: 20210625
  2. ATEZOLIZUMAB [Suspect]
     Active Substance: ATEZOLIZUMAB
     Indication: Small cell lung cancer extensive stage
     Dosage: START DATE OF MOST RECENT DOSE OF STUDY DRUG PRIOR TO AE/SAE: 01/JUN/2021?DOSE LAST STUDY DRUG ADMIN
     Route: 041
     Dates: start: 20201229
  3. CARBOPLATIN [Suspect]
     Active Substance: CARBOPLATIN
     Indication: Small cell lung cancer extensive stage
     Dosage: DOSE LAST STUDY DRUG ADMIN PRIOR AE/SAE: 468.7 MG?START DATE OF MOST RECENT DOSE OF STUDY DRUG PRIOR
     Route: 042
     Dates: start: 20201229
  4. ETOPOSIDE [Suspect]
     Active Substance: ETOPOSIDE
     Indication: Small cell lung cancer extensive stage
     Dosage: ON DAY 1 OF 4 CYCLES, DAY 2 AND DAY 3. ? MOST RECENT DOSE( 193 MG)  OF STUDY DRUG PRIOR TO AE/SAE: 1
     Route: 042
     Dates: start: 20201229
  5. DICHLOZID [Concomitant]
     Indication: Hypertension
     Route: 048
     Dates: start: 2010
  6. LOSARTAN POTASSIUM [Concomitant]
     Active Substance: LOSARTAN POTASSIUM
     Indication: Hypertension
     Route: 048
     Dates: start: 2010
  7. FEBUXOSTAT [Concomitant]
     Active Substance: FEBUXOSTAT
     Indication: Gout
     Route: 048
  8. COLCHICINE [Concomitant]
     Active Substance: COLCHICINE
     Indication: Gout
     Route: 048
     Dates: start: 20210511, end: 20210531
  9. COLCHICINE [Concomitant]
     Active Substance: COLCHICINE
     Route: 048
     Dates: start: 20210601
  10. COLCHICINE [Concomitant]
     Active Substance: COLCHICINE
     Dosage: 0.5 TABLET
     Route: 048
     Dates: start: 20210616, end: 20210616
  11. COLCHICINE [Concomitant]
     Active Substance: COLCHICINE
     Route: 048
     Dates: start: 20210617, end: 20210617
  12. COLCHICINE [Concomitant]
     Active Substance: COLCHICINE
     Route: 048
     Dates: start: 20210617, end: 20210618
  13. COLCHICINE [Concomitant]
     Active Substance: COLCHICINE
     Route: 048
     Dates: start: 20210619, end: 202208
  14. COLCHICINE [Concomitant]
     Active Substance: COLCHICINE
     Route: 048
     Dates: start: 1998
  15. COLCHICINE [Concomitant]
     Active Substance: COLCHICINE
     Route: 048
     Dates: start: 20210601
  16. COLCHICINE [Concomitant]
     Active Substance: COLCHICINE
     Route: 048
     Dates: start: 20211227, end: 20220626
  17. COLCHICINE [Concomitant]
     Active Substance: COLCHICINE
     Route: 048
     Dates: start: 20210831, end: 20211226
  18. COLCHICINE [Concomitant]
     Active Substance: COLCHICINE
     Route: 048
     Dates: start: 20220627
  19. PRINA [Concomitant]
     Indication: Gout
     Route: 048
     Dates: start: 1998
  20. URININ [Concomitant]
     Indication: Gout
     Route: 048
     Dates: start: 1998
  21. INDOMETA [Concomitant]
     Indication: Gout
     Route: 048
     Dates: start: 1998
  22. RAMOSETRON HYDROCHLORIDE [Concomitant]
     Active Substance: RAMOSETRON HYDROCHLORIDE
     Route: 042
     Dates: start: 20201229, end: 20210625
  23. RAMOSETRON HYDROCHLORIDE [Concomitant]
     Active Substance: RAMOSETRON HYDROCHLORIDE
     Route: 048
     Dates: start: 20201229
  24. DIMETHICONE\PANCRELIPASE\URSODIOL [Concomitant]
     Active Substance: DIMETHICONE\PANCRELIPASE\URSODIOL
     Indication: Gastritis
     Route: 048
     Dates: start: 20210202
  25. ITOPRIDE [Concomitant]
     Active Substance: ITOPRIDE
     Indication: Gastritis
     Route: 048
     Dates: start: 20210202
  26. MEGESTROL [Concomitant]
     Active Substance: MEGESTROL
     Indication: Decreased appetite
     Route: 048
     Dates: start: 20210216, end: 20210531
  27. FAMOTIDINE [Concomitant]
     Active Substance: FAMOTIDINE
     Indication: Gastritis
     Route: 048
     Dates: start: 20210219
  28. CHLORHEXIDINE [Concomitant]
     Active Substance: CHLORHEXIDINE
     Route: 061
     Dates: start: 20210126
  29. NOREPINEPHRINE [Concomitant]
     Active Substance: NOREPINEPHRINE
     Route: 042
     Dates: start: 20210613, end: 20210614
  30. ACTH [Concomitant]
     Active Substance: CORTICOTROPIN
     Route: 042
     Dates: start: 20210614, end: 20210614
  31. FUROSEMIDE [Concomitant]
     Active Substance: FUROSEMIDE
     Route: 042
     Dates: start: 20210615, end: 20210615
  32. DIETARY SUPPLEMENT\HERBALS\MILK THISTLE [Concomitant]
     Active Substance: MILK THISTLE
     Indication: Alanine aminotransferase increased
     Route: 048
     Dates: start: 20220208, end: 20220323
  33. DIETARY SUPPLEMENT\HERBALS\MILK THISTLE [Concomitant]
     Active Substance: MILK THISTLE
     Indication: Aspartate aminotransferase increased
  34. PREDNISOLONE [Concomitant]
     Active Substance: PREDNISOLONE
     Indication: Alanine aminotransferase increased
     Route: 048
     Dates: start: 20220208, end: 20220214
  35. PREDNISOLONE [Concomitant]
     Active Substance: PREDNISOLONE
     Indication: Aspartate aminotransferase increased
     Route: 048
     Dates: start: 20220215, end: 20220302
  36. PREDNISOLONE [Concomitant]
     Active Substance: PREDNISOLONE
     Route: 048
     Dates: start: 20220303, end: 20220324
  37. ALLOPURINOL [Concomitant]
     Active Substance: ALLOPURINOL
     Indication: Prophylaxis
     Route: 048
     Dates: start: 20211126
  38. URSODIOL [Concomitant]
     Active Substance: URSODIOL
     Indication: Alanine aminotransferase increased
     Route: 048
     Dates: start: 20230502
  39. URSODIOL [Concomitant]
     Active Substance: URSODIOL
     Indication: Aspartate aminotransferase increased

REACTIONS (1)
  - Diabetes mellitus [Not Recovered/Not Resolved]

NARRATIVE: CASE EVENT DATE: 20210613
